FAERS Safety Report 6504785-X (Version None)
Quarter: 2009Q4

REPORT INFORMATION
  Report Type: 
  Country: None (occurrence: None)
  Receive Date: 20091215
  Receipt Date: 20091207
  Transmission Date: 20100525
  Serious: Yes (Life-Threatening, Other)
  Sender: FDA-Public Use
  Company Number: 2009029524

PATIENT
  Sex: Female

DRUGS (3)
  1. TRISENOX [Suspect]
     Indication: MYELODYSPLASTIC SYNDROME
     Dosage: 0.0714 MG/KG (0.25 MG/KG, 2 IN 1 WK), INTRAVENOUS DRIP
     Route: 041
     Dates: start: 20041201
  2. LOVASTATIN [Suspect]
     Indication: MYELODYSPLASTIC SYNDROME
     Dosage: 1 IN 1 D), ORAL, 80 MG, 1 IN 1 D), ORAL
     Route: 048
     Dates: start: 20050103, end: 20050104
  3. LOVASTATIN [Suspect]
     Indication: MYELODYSPLASTIC SYNDROME
     Dosage: 1 IN 1 D), ORAL, 80 MG, 1 IN 1 D), ORAL
     Route: 048
     Dates: start: 20041201

REACTIONS (11)
  - ANAEMIA [None]
  - BACK PAIN [None]
  - BLOOD CREATINE PHOSPHOKINASE INCREASED [None]
  - CELLULITIS [None]
  - INSOMNIA [None]
  - MOUTH ULCERATION [None]
  - PALPITATIONS [None]
  - RASH [None]
  - SUPRAVENTRICULAR TACHYCARDIA [None]
  - THROMBOCYTOPENIA [None]
  - VERTIGO POSITIONAL [None]
